FAERS Safety Report 16185573 (Version 2)
Quarter: 2019Q2

REPORT INFORMATION
  Report Type: Spontaneous
  Country: NO (occurrence: NO)
  Receive Date: 20190411
  Receipt Date: 20190429
  Transmission Date: 20190711
  Serious: Yes (Life-Threatening, Hospitalization)
  Sender: FDA-Public Use
  Company Number: NO-TEVA-2019-NO-1035084

PATIENT
  Age: 14 Year
  Sex: Male

DRUGS (1)
  1. METHOTREXATE. [Suspect]
     Active Substance: METHOTREXATE
     Indication: ACUTE LYMPHOCYTIC LEUKAEMIA
     Dosage: 240MG INSTEAD OF PRESCRIBED 12 MG (100 MG/ML SOLUTION USED INSTEAD OF 5 MG/ML)
     Route: 037

REACTIONS (7)
  - Seizure [Recovered/Resolved]
  - Product label issue [Unknown]
  - Confusional state [Recovered/Resolved]
  - Pyrexia [Recovered/Resolved]
  - Somnolence [Recovered/Resolved]
  - Product dispensing error [Unknown]
  - Accidental overdose [Unknown]
